FAERS Safety Report 15683884 (Version 2)
Quarter: 2018Q4

REPORT INFORMATION
  Report Type: Report from Study
  Country: ES (occurrence: ES)
  Receive Date: 20181204
  Receipt Date: 20181224
  Transmission Date: 20190205
  Serious: Yes (Other)
  Sender: FDA-Public Use
  Company Number: ES-TEVA-2018-ES-983340

PATIENT
  Age: 38 Year
  Sex: Female

DRUGS (1)
  1. COPAXONE [Suspect]
     Active Substance: GLATIRAMER ACETATE
     Indication: RELAPSING-REMITTING MULTIPLE SCLEROSIS
     Route: 058
     Dates: start: 20151023

REACTIONS (9)
  - Injection site haematoma [Unknown]
  - Injection site necrosis [Not Recovered/Not Resolved]
  - Injection site infection [Unknown]
  - Injection site scab [Unknown]
  - Injection site erythema [Unknown]
  - Injection site pain [Unknown]
  - Injection site inflammation [Unknown]
  - Wrong technique in product usage process [Unknown]
  - Purulence [Unknown]

NARRATIVE: CASE EVENT DATE: 201810
